FAERS Safety Report 16957959 (Version 1)
Quarter: 2019Q4

REPORT INFORMATION
  Report Type: Spontaneous
  Country: GB (occurrence: GB)
  Receive Date: 20191024
  Receipt Date: 20191024
  Transmission Date: 20200122
  Serious: Yes (Other)
  Sender: FDA-Public Use
  Company Number: GB-SAMSUNG BIOEPIS-SB-2019-31157

PATIENT
  Age: 12 Year
  Sex: Male

DRUGS (7)
  1. METHYLPREDNISOLONE. [Concomitant]
     Active Substance: METHYLPREDNISOLONE
     Indication: GRAFT VERSUS HOST DISEASE
     Dosage: UNKNOWN
     Route: 065
  2. MYCOPHENOLATE MOFETIL. [Concomitant]
     Active Substance: MYCOPHENOLATE MOFETIL
     Indication: PROPHYLAXIS AGAINST GRAFT VERSUS HOST DISEASE
  3. SIROLIMUS. [Concomitant]
     Active Substance: SIROLIMUS
     Indication: GRAFT VERSUS HOST DISEASE
     Dosage: UNKNOWN
     Route: 065
  4. CYCLOPHOSPHAMIDE. [Concomitant]
     Active Substance: CYCLOPHOSPHAMIDE
     Indication: PROPHYLAXIS AGAINST GRAFT VERSUS HOST DISEASE
     Dosage: UNKNOWN
     Route: 065
  5. BASILIXIMAB [Concomitant]
     Active Substance: BASILIXIMAB
     Indication: GRAFT VERSUS HOST DISEASE
     Dosage: UNKNOWN
     Route: 065
  6. CICLOSPORIN [Concomitant]
     Active Substance: CYCLOSPORINE
     Indication: GRAFT VERSUS HOST DISEASE
     Dosage: UNKNOWN
     Route: 065
  7. INFLIXIMAB [Suspect]
     Active Substance: INFLIXIMAB
     Indication: GRAFT VERSUS HOST DISEASE
     Dosage: UNKNOWN
     Route: 065

REACTIONS (2)
  - Off label use [Unknown]
  - Graft versus host disease [Recovered/Resolved]
